FAERS Safety Report 21711358 (Version 3)
Quarter: 2024Q3

REPORT INFORMATION
  Report Type: Report from Study
  Country: US (occurrence: US)
  Receive Date: 20221212
  Receipt Date: 20240909
  Transmission Date: 20241017
  Serious: No
  Sender: AMGEN
  Company Number: US-AMGEN-USASP2022212780

PATIENT
  Age: 11 Year
  Sex: Female

DRUGS (2)
  1. ENBREL [Suspect]
     Active Substance: ETANERCEPT
     Indication: Osteomyelitis chronic
     Dosage: 25 MILLIGRAM
     Route: 065
  2. ENBREL [Suspect]
     Active Substance: ETANERCEPT
     Indication: Off label use
     Dosage: 0.8 MILLILITER, QWK
     Route: 065

REACTIONS (4)
  - Product storage error [Unknown]
  - Circumstance or information capable of leading to medication error [Unknown]
  - Incorrect disposal of product [Unknown]
  - Off label use [Unknown]

NARRATIVE: CASE EVENT DATE: 20221206
